FAERS Safety Report 5701362-5 (Version None)
Quarter: 2008Q2

REPORT INFORMATION
  Report Type: 
  Country: None (occurrence: None)
  Receive Date: 20080410
  Receipt Date: 20080311
  Transmission Date: 20081010
  Serious: Yes (Hospitalization)
  Sender: FDA-Public Use
  Company Number: FR-AMGEN-02060258

PATIENT
  Sex: Female

DRUGS (11)
  1. ENBREL [Suspect]
     Indication: RHEUMATOID ARTHRITIS
     Route: 058
     Dates: start: 20020301, end: 20020601
  2. ENBREL [Suspect]
  3. PREDNISOLONE [Concomitant]
     Route: 065
     Dates: start: 19800101
  4. PROPRANOLOL [Concomitant]
     Route: 065
  5. METFORMIN HCL [Concomitant]
     Route: 065
     Dates: start: 19990101
  6. LANSOPRAZOLE [Concomitant]
     Route: 065
     Dates: start: 20000101
  7. TRAMADOL HCL [Concomitant]
     Route: 065
  8. ESTRADIOL [Concomitant]
     Route: 065
  9. PROMEGESTONE [Concomitant]
     Route: 065
  10. NICORANDIL [Concomitant]
     Route: 065
  11. ALTIZIDE SPIRONOLACTONE [Concomitant]
     Route: 065
     Dates: start: 20020201

REACTIONS (2)
  - NEURITIS [None]
  - VASCULITIS [None]
